FAERS Safety Report 8414426-2 (Version None)
Quarter: 2012Q2

REPORT INFORMATION
  Report Type: 
  Country: None (occurrence: None)
  Receive Date: 20120605
  Receipt Date: 20120529
  Transmission Date: 20120825
  Serious: Yes (Life-Threatening, Hospitalization)
  Sender: FDA-Public Use
  Company Number: CHPA2012US011593

PATIENT
  Sex: Male
  Weight: 52.4 kg

DRUGS (9)
  1. PLACEBO [Suspect]
     Indication: CROHN'S DISEASE
     Dosage: UNK
     Route: 042
     Dates: start: 20120323
  2. SUMATRIPTAN [Concomitant]
     Indication: MIGRAINE
  3. ACETAMINOPHEN AND OXYCODONE HCL [Concomitant]
     Indication: PAIN
  4. DRUG THERAPY NOS [Suspect]
     Dosage: UNK, UNK
     Route: 042
     Dates: start: 20120110, end: 20120110
  5. PROTONIX [Concomitant]
     Indication: GASTROOESOPHAGEAL REFLUX DISEASE
  6. NSAID'S [Concomitant]
     Indication: PAIN
  7. DRUG THERAPY NOS [Suspect]
     Indication: CROHN'S DISEASE
     Dosage: UNK, UNK
     Route: 042
     Dates: start: 20120323
  8. EXCEDRIN (MIGRAINE) [Suspect]
     Dosage: UNK, UNK
  9. PLACEBO [Suspect]
     Dosage: UNK
     Route: 042
     Dates: start: 20120110

REACTIONS (1)
  - LOWER GASTROINTESTINAL HAEMORRHAGE [None]
